FAERS Safety Report 22257805 (Version 1)
Quarter: 2023Q2

REPORT INFORMATION
  Report Type: Spontaneous
  Country: CN (occurrence: CN)
  Receive Date: 20230427
  Receipt Date: 20230427
  Transmission Date: 20230721
  Serious: Yes (Other)
  Sender: FDA-Public Use
  Company Number: CN-KOREA IPSEN Pharma-2023-04239

PATIENT
  Age: 70 Year
  Sex: Male

DRUGS (4)
  1. LANREOTIDE ACETATE [Suspect]
     Active Substance: LANREOTIDE ACETATE
     Indication: Renal cancer
     Dates: start: 202207
  2. LANREOTIDE ACETATE [Suspect]
     Active Substance: LANREOTIDE ACETATE
     Indication: Off label use
  3. DEVICE [Suspect]
     Active Substance: DEVICE
     Indication: Renal cancer
  4. DEVICE [Suspect]
     Active Substance: DEVICE
     Indication: Off label use

REACTIONS (6)
  - Neoplasm progression [Unknown]
  - Condition aggravated [Unknown]
  - Off label use [Unknown]
  - Off label use [Unknown]
  - Off label use [Unknown]
  - Drug ineffective [Unknown]

NARRATIVE: CASE EVENT DATE: 20220501
